FAERS Safety Report 15110360 (Version 6)
Quarter: 2020Q4

REPORT INFORMATION
  Report Type: Report from Study
  Country: US (occurrence: US)
  Receive Date: 20180705
  Receipt Date: 20201124
  Transmission Date: 20210113
  Serious: Yes (Hospitalization, Disabling, Other)
  Sender: FDA-Public Use
  Company Number: US-SA-2018SA177682

PATIENT

DRUGS (13)
  1. TERIFLUNOMIDE. [Suspect]
     Active Substance: TERIFLUNOMIDE
     Indication: RELAPSING-REMITTING MULTIPLE SCLEROSIS
     Dosage: 7 MG, QD
     Route: 048
     Dates: start: 201609
  2. OXYCODONE AND ACETAMINOPHEN [Concomitant]
     Active Substance: ACETAMINOPHEN\OXYCODONE HYDROCHLORIDE
     Dosage: 10-325 MG, QID (30 DAYS) PRN
     Route: 048
     Dates: start: 20200730
  3. LEXAPRO [Concomitant]
     Active Substance: ESCITALOPRAM OXALATE
     Dosage: 20 MG, QD (90 DAYS)
     Route: 048
     Dates: start: 20200207
  4. TERIFLUNOMIDE. [Suspect]
     Active Substance: TERIFLUNOMIDE
     Indication: MULTIPLE SCLEROSIS
     Dosage: 7 MG, QD
     Route: 048
     Dates: start: 20170324
  5. METFORMINE [METFORMIN HYDROCHLORIDE] [Concomitant]
     Active Substance: METFORMIN HYDROCHLORIDE
     Dosage: 500 MG, QD (90 DAYS)
     Route: 048
     Dates: start: 20181026
  6. LIDOCAINE. [Concomitant]
     Active Substance: LIDOCAINE
     Dosage: TRANSDERMAL PATCH 5%, 1 PATCH ON FOR 12 HOURS, OFF FOR 12 HOURS PAIN (30 DAYS)
     Dates: start: 20200218
  7. FLOMAX [Concomitant]
     Active Substance: TAMSULOSIN HYDROCHLORIDE
     Dosage: 0.4 MG (90 DAYS)
     Route: 048
     Dates: start: 20181026
  8. LYRICA [Concomitant]
     Active Substance: PREGABALIN
     Dosage: 75 MG, QW 1 CAPSULE BY MOUTH (QD*QW) THEN 1 CAPSULE BY MOUTH BID
     Route: 048
  9. TERIFLUNOMIDE. [Suspect]
     Active Substance: TERIFLUNOMIDE
     Dosage: 7 MG, QD (30 DAYS) (11 REFILLS)
     Route: 048
     Dates: start: 20190912
  10. CYANOCOBALAMIN. [Concomitant]
     Active Substance: CYANOCOBALAMIN
  11. GABAPENTIN. [Concomitant]
     Active Substance: GABAPENTIN
     Dosage: 800 MG, TID (90 DAYS) 1 REFILL
     Route: 048
     Dates: start: 20200319
  12. BUSPIRONE [Concomitant]
     Active Substance: BUSPIRONE HYDROCHLORIDE
     Dosage: 10 MG, TID
     Route: 048
  13. IBUPROFEN. [Concomitant]
     Active Substance: IBUPROFEN
     Dosage: 600 MG (30 DAYS)
     Route: 048
     Dates: start: 20200812

REACTIONS (40)
  - Faeces discoloured [Unknown]
  - Paraesthesia [Unknown]
  - Dysuria [Unknown]
  - Arthralgia [Unknown]
  - Urinary tract infection [Unknown]
  - Amnesia [Unknown]
  - Micturition urgency [Unknown]
  - Hypoaesthesia [Unknown]
  - Anxiety [Unknown]
  - Grip strength decreased [Unknown]
  - Balance disorder [Unknown]
  - Sensory disturbance [Unknown]
  - Neck pain [Unknown]
  - Aphasia [Unknown]
  - Gait disturbance [Unknown]
  - Sciatica [Unknown]
  - Fall [Unknown]
  - Relapsing-remitting multiple sclerosis [Unknown]
  - Dizziness [Unknown]
  - Vision blurred [Unknown]
  - Muscular weakness [Unknown]
  - Pollakiuria [Unknown]
  - Cervical radiculopathy [Unknown]
  - Heat exhaustion [Unknown]
  - Ataxia [Unknown]
  - Malaise [Unknown]
  - Condition aggravated [Unknown]
  - Muscle spasms [Unknown]
  - Fatigue [Unknown]
  - Wheelchair user [Unknown]
  - Urinary incontinence [Unknown]
  - Back pain [Unknown]
  - Musculoskeletal stiffness [Unknown]
  - Muscle tightness [Unknown]
  - Coordination abnormal [Unknown]
  - Headache [Unknown]
  - Sleep disorder [Unknown]
  - Depression [Unknown]
  - Insomnia [Unknown]
  - Cough [Unknown]

NARRATIVE: CASE EVENT DATE: 20190716
